FAERS Safety Report 25069897 (Version 1)
Quarter: 2025Q1

REPORT INFORMATION
  Report Type: Spontaneous
  Country: RU (occurrence: RU)
  Receive Date: 20250312
  Receipt Date: 20250312
  Transmission Date: 20250409
  Serious: Yes (Other)
  Sender: ELI LILLY AND COMPANY
  Company Number: RU-ELI_LILLY_AND_COMPANY-RU202503005587

PATIENT
  Age: 61 Year
  Sex: Female
  Weight: 94 kg

DRUGS (1)
  1. HUMULIN N [Suspect]
     Active Substance: INSULIN HUMAN
     Indication: Diabetes mellitus
     Dosage: 34 INTERNATIONAL UNIT, BID
     Route: 058

REACTIONS (3)
  - Ketosis [Recovering/Resolving]
  - Drug ineffective [Recovering/Resolving]
  - Hyperglycaemia [Recovering/Resolving]
